FAERS Safety Report 7246917-4 (Version None)
Quarter: 2011Q1

REPORT INFORMATION
  Report Type: 
  Country: None (occurrence: None)
  Receive Date: 20110127
  Receipt Date: 20110117
  Transmission Date: 20110831
  Serious: Yes (Hospitalization)
  Sender: FDA-Public Use
  Company Number: US-SANOFI-AVENTIS-2011SA004137

PATIENT
  Age: 85 Year
  Sex: Male
  Weight: 58.87 kg

DRUGS (5)
  1. CLOPIDOGREL BISULFATE [Suspect]
     Indication: ACUTE CORONARY SYNDROME
     Route: 048
     Dates: start: 20100805, end: 20100806
  2. CARVEDILOL [Concomitant]
     Dates: start: 20090226
  3. ASPIRIN [Concomitant]
     Dates: start: 20100730
  4. DEPONIT [Concomitant]
     Dates: start: 19930101
  5. NITROGLYCERIN [Concomitant]
     Dates: start: 20091030

REACTIONS (1)
  - DYSPEPSIA [None]
